FAERS Safety Report 10432122 (Version 2)
Quarter: 2015Q1

REPORT INFORMATION
  Report Type: Spontaneous
  Country: DK (occurrence: DK)
  Receive Date: 20140905
  Receipt Date: 20150313
  Transmission Date: 20150720
  Serious: Yes (Other)
  Sender: FDA-Public Use
  Company Number: DK-BRISTOL-MYERS SQUIBB COMPANY-21333083

PATIENT
  Age: 15 Year
  Sex: Female
  Weight: 54 kg

DRUGS (2)
  1. DELEPSINE [Interacting]
     Active Substance: DIVALPROEX SODIUM
     Indication: MANIA
     Dosage: 1 DF=300 MG + 600 MG  GASTRO RESISTANT TABLET
     Route: 065
     Dates: start: 20140313
  2. ABILIFY [Suspect]
     Active Substance: ARIPIPRAZOLE
     Indication: MANIA
     Dosage: SOLUTION FOR INJECTION  ABILIFY 7.5 MG,
     Route: 065
     Dates: start: 20140709

REACTIONS (3)
  - Drug interaction [Recovered/Resolved]
  - Neutropenia [Recovering/Resolving]
  - Leukopenia [Recovering/Resolving]

NARRATIVE: CASE EVENT DATE: 20140714
